FAERS Safety Report 24638845 (Version 1)
Quarter: 2024Q4

REPORT INFORMATION
  Report Type: Spontaneous
  Country: US (occurrence: US)
  Receive Date: 20241119
  Receipt Date: 20241119
  Transmission Date: 20250115
  Serious: No
  Sender: TAIHO ONCOLOGY INC
  Company Number: US-TAIHOP-2024-010855

PATIENT
  Sex: Female

DRUGS (1)
  1. LONSURF [Suspect]
     Active Substance: TIPIRACIL HYDROCHLORIDE\TRIFLURIDINE
     Indication: Neoplasm malignant
     Dosage: CYCLE UNKNOWN
     Route: 048
     Dates: start: 202408, end: 202410

REACTIONS (3)
  - Asthenia [Unknown]
  - Drug ineffective [Unknown]
  - Nausea [Unknown]
